FAERS Safety Report 12557678 (Version 1)
Quarter: 2016Q3

REPORT INFORMATION
  Report Type: Spontaneous
  Country: US (occurrence: US)
  Receive Date: 20160714
  Receipt Date: 20160714
  Transmission Date: 20161109
  Serious: Yes (Hospitalization)
  Sender: FDA-Public Use
  Company Number: US-JNJFOC-20160707883

PATIENT
  Sex: Female
  Weight: 84 kg

DRUGS (2)
  1. INVEGA SUSTENNA [Suspect]
     Active Substance: PALIPERIDONE PALMITATE
     Indication: BIPOLAR DISORDER
     Route: 030
     Dates: end: 20160706
  2. INVEGA [Suspect]
     Active Substance: PALIPERIDONE
     Indication: BIPOLAR DISORDER
     Route: 048
     Dates: start: 20160706

REACTIONS (6)
  - Intestinal resection [Unknown]
  - Off label use [Unknown]
  - Hospitalisation [Unknown]
  - Drug dose omission [Unknown]
  - Suicidal ideation [Unknown]
  - Product use issue [Unknown]

NARRATIVE: CASE EVENT DATE: 2016
